FAERS Safety Report 22333936 (Version 2)
Quarter: 2023Q2

REPORT INFORMATION
  Report Type: Spontaneous
  Country: US (occurrence: US)
  Receive Date: 20230517
  Receipt Date: 20230616
  Transmission Date: 20230722
  Serious: No
  Sender: FDA-Public Use
  Company Number: US-Calliditas-2023CAL00464

PATIENT
  Age: 36 Year
  Sex: Female

DRUGS (1)
  1. TARPEYO [Suspect]
     Active Substance: BUDESONIDE
     Indication: Chronic kidney disease
     Dosage: 16MG (4MG CAPSULES) ONCE DAILY
     Route: 048
     Dates: start: 20221126

REACTIONS (8)
  - Weight increased [Unknown]
  - Off label use [Unknown]
  - Steroid withdrawal syndrome [Unknown]
  - Loss of personal independence in daily activities [Unknown]
  - Headache [Unknown]
  - Asthenia [Unknown]
  - Asthenia [Unknown]
  - Fatigue [Unknown]
